FAERS Safety Report 23375678 (Version 2)
Quarter: 2024Q1

REPORT INFORMATION
  Report Type: Report from Study
  Country: KR (occurrence: KR)
  Receive Date: 20240107
  Receipt Date: 20240110
  Transmission Date: 20240410
  Serious: Yes (Hospitalization)
  Sender: FDA-Public Use
  Company Number: KR-CELLTRION INC.-2023KR024850

PATIENT

DRUGS (10)
  1. INFLIXIMAB [Suspect]
     Active Substance: INFLIXIMAB
     Indication: Rheumatoid arthritis
     Dosage: SUBCUTANEOUS INJECTION PER A WEEK
     Route: 058
     Dates: start: 20230624, end: 20230722
  2. INFLIXIMAB [Suspect]
     Active Substance: INFLIXIMAB
     Dosage: SUBCUTANEOUS INJECTION PER 2 WEEKS
     Route: 058
     Dates: start: 20230805
  3. INFLIXIMAB [Suspect]
     Active Substance: INFLIXIMAB
     Dosage: 120MG SUBCUTANEOUSLY EVERY 2 WEEKS
     Route: 058
     Dates: start: 20231111
  4. INFLIXIMAB [Suspect]
     Active Substance: INFLIXIMAB
     Dosage: 120 MG, Q2WEEKS
     Route: 058
     Dates: start: 20231125
  5. LEVOFLOXACIN [Concomitant]
     Active Substance: LEVOFLOXACIN
     Indication: Pleural effusion
     Dosage: 750 MG, DAILY
     Route: 042
     Dates: start: 20231114, end: 20231114
  6. LEVOFLOXACIN [Concomitant]
     Active Substance: LEVOFLOXACIN
     Indication: Antibiotic therapy
  7. MOXIFLOXACIN [Concomitant]
     Active Substance: MOXIFLOXACIN
     Indication: Pleural effusion
     Dosage: 400 MG, DAILY
     Route: 042
     Dates: start: 20231115, end: 20231124
  8. MOXIFLOXACIN [Concomitant]
     Active Substance: MOXIFLOXACIN
     Indication: Antibiotic therapy
  9. LYNBACTAM [Concomitant]
     Indication: Pleural effusion
     Dosage: 4.5 G, DAILY
     Route: 042
     Dates: start: 20231115, end: 20231124
  10. LYNBACTAM [Concomitant]
     Indication: Antibiotic therapy

REACTIONS (1)
  - Pleural effusion [Recovered/Resolved]

NARRATIVE: CASE EVENT DATE: 20231114
